FAERS Safety Report 13314625 (Version 1)
Quarter: 2017Q1

REPORT INFORMATION
  Report Type: Spontaneous
  Country: GB (occurrence: GB)
  Receive Date: 20170309
  Receipt Date: 20170309
  Transmission Date: 20170428
  Serious: Yes (Disabling, Other)
  Sender: FDA-Public Use
  Company Number: GB-TEVA-745302ACC

PATIENT
  Age: 57 Year
  Sex: Female
  Weight: 82.5 kg

DRUGS (8)
  1. CITALOPRAM [Concomitant]
     Active Substance: CITALOPRAM HYDROBROMIDE
     Dates: start: 20160726
  2. FLUORESCEIN [Concomitant]
     Active Substance: FLUORESCEIN
     Dosage: USE IMMEDIATELY.
     Route: 047
     Dates: start: 20161129
  3. DOXYCYCLINE. [Suspect]
     Active Substance: DOXYCYCLINE
     Indication: COUGH
     Dosage: 100 MILLIGRAM DAILY;
     Route: 048
     Dates: start: 20170213, end: 20170216
  4. AMOXICILLIN. [Concomitant]
     Active Substance: AMOXICILLIN
     Dates: start: 20170216
  5. VENTOLIN [Concomitant]
     Active Substance: ALBUTEROL SULFATE
     Dates: start: 20161129
  6. CLENIL MODULITE [Concomitant]
     Active Substance: BECLOMETHASONE DIPROPIONATE
     Route: 055
     Dates: start: 20161129
  7. LORATADINE. [Concomitant]
     Active Substance: LORATADINE
     Dates: start: 20161129
  8. OPTICROM [Concomitant]
     Active Substance: CROMOLYN SODIUM
     Dosage: APPLY ONE TO TWO DROPS UP TO FOUR TIMES A DAY.
     Route: 047
     Dates: start: 20161129

REACTIONS (4)
  - Aphasia [Unknown]
  - Communication disorder [Unknown]
  - Irritability [Unknown]
  - Confusional state [Recovering/Resolving]

NARRATIVE: CASE EVENT DATE: 20170214
